FAERS Safety Report 15734813 (Version 2)
Quarter: 2018Q4

REPORT INFORMATION
  Report Type: Spontaneous
  Country: US (occurrence: US)
  Receive Date: 20181218
  Receipt Date: 20181225
  Transmission Date: 20190205
  Serious: Yes (Other)
  Sender: FDA-Public Use
  Company Number: US-BAUSCH-BL-2018-035107

PATIENT
  Age: 80 Year
  Sex: Female

DRUGS (2)
  1. SILIQ [Suspect]
     Active Substance: BRODALUMAB
     Dosage: MAINTENANCE
     Route: 065
     Dates: start: 2018, end: 20181129
  2. SILIQ [Suspect]
     Active Substance: BRODALUMAB
     Indication: PSORIASIS
     Dosage: INDUCTION
     Route: 065
     Dates: start: 20181018, end: 2018

REACTIONS (2)
  - Squamous cell carcinoma [Not Recovered/Not Resolved]
  - Skin plaque [Recovering/Resolving]

NARRATIVE: CASE EVENT DATE: 2018
